FAERS Safety Report 10163106 (Version 9)
Quarter: 2015Q1

REPORT INFORMATION
  Report Type: Spontaneous
  Country: US (occurrence: US)
  Receive Date: 20140509
  Receipt Date: 20150317
  Transmission Date: 20150720
  Serious: Yes (Hospitalization, Other)
  Sender: FDA-Public Use
  Company Number: US-GLAXOSMITHKLINE-A1044798A

PATIENT
  Age: 42 Year
  Sex: Female

DRUGS (7)
  1. FLOLAN [Suspect]
     Active Substance: EPOPROSTENOL SODIUM
     Dosage: 53 NG/KG/MIN
     Route: 042
  2. FLOLAN [Suspect]
     Active Substance: EPOPROSTENOL SODIUM
     Indication: PULMONARY ARTERIAL HYPERTENSION
     Dosage: DOSE: 49 NG/KG/MIN CONTINUOUSLYCONCENTRATION: 45,000 NG/MLPUMP RATE: 78 ML/DAYVIAL STRENGTH: 1.[...]
     Route: 042
     Dates: start: 20080926
  3. FLOLAN [Suspect]
     Active Substance: EPOPROSTENOL SODIUM
     Dates: start: 20080926
  4. FLOLAN [Suspect]
     Active Substance: EPOPROSTENOL SODIUM
     Dosage: 53 NG/KG/MIN; CONCENTRATION 45,000 NG/ML; PUMP RATE 85 ML/DAY; VIAL STRENGTH 1.5 MG
     Route: 042
  5. WARFARIN [Concomitant]
     Active Substance: WARFARIN
  6. REVATIO [Concomitant]
     Active Substance: SILDENAFIL CITRATE
  7. FLOLAN [Suspect]
     Active Substance: EPOPROSTENOL SODIUM
     Dosage: UNK
     Dates: start: 20080926

REACTIONS (9)
  - Pulmonary hypertension [Unknown]
  - Hospitalisation [Unknown]
  - Liver function test abnormal [Not Recovered/Not Resolved]
  - Dyspnoea [Not Recovered/Not Resolved]
  - Pneumonia [Unknown]
  - Pyrexia [Not Recovered/Not Resolved]
  - Abdominal pain [Not Recovered/Not Resolved]
  - Hepatic congestion [Not Recovered/Not Resolved]
  - Influenza [Unknown]

NARRATIVE: CASE EVENT DATE: 2014
